FAERS Safety Report 16532062 (Version 5)
Quarter: 2019Q4

REPORT INFORMATION
  Report Type: Spontaneous
  Country: US (occurrence: US)
  Receive Date: 20190704
  Receipt Date: 20191029
  Transmission Date: 20200122
  Serious: Yes (Hospitalization, Other)
  Sender: FDA-Public Use
  Company Number: US-PFIZER INC-2019283546

PATIENT
  Age: 20 Year
  Sex: Female
  Weight: 52.15 kg

DRUGS (1)
  1. LORBRENA [Suspect]
     Active Substance: LORLATINIB
     Indication: NEUROBLASTOMA
     Dosage: 100 MG, 1X/DAY
     Dates: start: 20190601

REACTIONS (4)
  - Appendicitis [Recovered/Resolved]
  - Product use issue [Unknown]
  - Abdominal pain upper [Recovered/Resolved]
  - Off label use [Unknown]

NARRATIVE: CASE EVENT DATE: 20190601
